FAERS Safety Report 4697423-2 (Version None)
Quarter: 2005Q2

REPORT INFORMATION
  Report Type: 
  Country: None (occurrence: None)
  Receive Date: 20050621
  Receipt Date: 20050603
  Transmission Date: 20051028
  Serious: Yes (Death)
  Sender: FDA-Public Use
  Company Number: US_0506118404

PATIENT

DRUGS (1)
  1. ZYPREXA [Suspect]
     Indication: DEPRESSION
     Dates: start: 20030101

REACTIONS (1)
  - DIABETES MELLITUS [None]
